FAERS Safety Report 13125241 (Version 1)
Quarter: 2017Q1

REPORT INFORMATION
  Report Type: Spontaneous
  Country: US (occurrence: US)
  Receive Date: 20170117
  Receipt Date: 20170117
  Transmission Date: 20170428
  Serious: Yes (Life-Threatening)
  Sender: FDA-Public Use
  Company Number: None

PATIENT
  Age: 65 Year
  Sex: Male
  Weight: 110.3 kg

DRUGS (1)
  1. REGADENOSON [Suspect]
     Active Substance: REGADENOSON
     Indication: CARDIAC OPERATION
     Route: 042
     Dates: start: 20161102, end: 20161102

REACTIONS (4)
  - Pallor [None]
  - Cardio-respiratory arrest [None]
  - Bradycardia [None]
  - Hyperhidrosis [None]

NARRATIVE: CASE EVENT DATE: 20161102
